FAERS Safety Report 8251150-3 (Version None)
Quarter: 2012Q2

REPORT INFORMATION
  Report Type: 
  Country: None (occurrence: None)
  Receive Date: 20120402
  Receipt Date: 20120329
  Transmission Date: 20120825
  Serious: Yes (Disabling, Other)
  Sender: FDA-Public Use
  Company Number: US-MERCK-1111USA02472

PATIENT
  Age: 60 Year
  Sex: Female

DRUGS (2)
  1. ALENDRONATE SODIUM [Suspect]
     Route: 048
     Dates: start: 20080916, end: 20100320
  2. FOSAMAX [Suspect]
     Route: 048
     Dates: start: 20060101, end: 20090101

REACTIONS (3)
  - OSTEONECROSIS OF JAW [None]
  - OSTEOMYELITIS [None]
  - ADVERSE EVENT [None]
